FAERS Safety Report 20683864 (Version 1)
Quarter: 2022Q2

REPORT INFORMATION
  Report Type: Spontaneous
  Country: US (occurrence: None)
  Receive Date: 20220405
  Receipt Date: 20220405
  Transmission Date: 20220720
  Serious: Yes (Hospitalization)
  Sender: FDA-Public Use
  Company Number: None

PATIENT
  Age: 48 Year
  Sex: Female

DRUGS (1)
  1. ENBREL [Suspect]
     Active Substance: ETANERCEPT
     Route: 058
     Dates: start: 20201218, end: 202203

REACTIONS (3)
  - Urinary tract infection [None]
  - Therapy cessation [None]
  - Rheumatoid arthritis [None]

NARRATIVE: CASE EVENT DATE: 20220315
